FAERS Safety Report 9768168 (Version 3)
Quarter: 2014Q1

REPORT INFORMATION
  Report Type: Spontaneous
  Country: JP (occurrence: JP)
  Receive Date: 20131217
  Receipt Date: 20140303
  Transmission Date: 20141002
  Serious: Yes (Hospitalization)
  Sender: FDA-Public Use
  Company Number: JP-GLAXOSMITHKLINE-B0944086A

PATIENT
  Age: 16 Year
  Sex: Female

DRUGS (4)
  1. LAMICTAL [Suspect]
     Indication: DEPRESSION
     Dosage: 25MG PER DAY
     Route: 048
     Dates: start: 20131007, end: 20131016
  2. AMOXAN [Suspect]
     Indication: PRODUCT USED FOR UNKNOWN INDICATION
     Route: 048
  3. JZOLOFT [Concomitant]
     Route: 048
  4. REMERON [Concomitant]
     Route: 048

REACTIONS (24)
  - Stevens-Johnson syndrome [Recovering/Resolving]
  - Toxic epidermal necrolysis [Recovering/Resolving]
  - Epidermal necrosis [Recovering/Resolving]
  - Skin disorder [Recovering/Resolving]
  - Eyelid erosion [Recovering/Resolving]
  - Ocular hyperaemia [Recovering/Resolving]
  - Conjunctival hyperaemia [Recovering/Resolving]
  - Cheilitis [Recovering/Resolving]
  - Lip erosion [Recovering/Resolving]
  - Vulvar erosion [Recovering/Resolving]
  - Erythema [Recovering/Resolving]
  - Pyrexia [Recovering/Resolving]
  - Rash [Recovering/Resolving]
  - Hypophagia [Recovering/Resolving]
  - Blister [Recovering/Resolving]
  - Corneal lesion [Recovering/Resolving]
  - Erythema of eyelid [Recovering/Resolving]
  - Eye discharge [Recovering/Resolving]
  - Conjunctivitis [Recovering/Resolving]
  - Oral mucosa erosion [Recovering/Resolving]
  - Scab [Recovering/Resolving]
  - Vulval disorder [Recovering/Resolving]
  - Skin erosion [Recovering/Resolving]
  - Mucous membrane disorder [Recovering/Resolving]
